FAERS Safety Report 8804921 (Version 1)
Quarter: 2012Q4

REPORT INFORMATION
  Report Type: 
  Country: CH (occurrence: CH)
  Receive Date: 20120924
  Receipt Date: 20120924
  Transmission Date: 20130627
  Serious: Yes (Hospitalization)
  Sender: FDA-Public Use
  Company Number: CH-PFIZER INC-2012231957

PATIENT
  Age: 70 Year
  Sex: Male

DRUGS (14)
  1. SORTIS [Suspect]
     Indication: CARDIOVASCULAR DISORDER
     Dosage: 40 mg, 1x/day
     Route: 048
     Dates: start: 2011, end: 20120514
  2. JANUVIA [Suspect]
     Indication: TYPE 2 DIABETES MELLITUS
     Dosage: 100 mg, 1x/day
     Route: 048
     Dates: start: 20110310, end: 20120514
  3. NEXIUM [Concomitant]
     Dosage: 40 mg, 1x/day
     Route: 048
  4. AMLODIPINE [Concomitant]
     Dosage: 10 mg, 1x/day
     Route: 048
     Dates: end: 20120514
  5. ASPIRIN CARDIO [Concomitant]
     Dosage: 100 mg, 1x/day
     Route: 048
  6. STILNOX [Concomitant]
     Dosage: 10 mg, 1x/day
     Route: 048
     Dates: end: 20120514
  7. TRIATEC [Concomitant]
     Dosage: 1.25 mg, 1x/day
     Route: 048
     Dates: end: 20120514
  8. TOREM [Concomitant]
     Dosage: 5 mg, 1x/day
     Route: 048
     Dates: end: 20120514
  9. ACIDUM FOLICUM [Concomitant]
     Dosage: 5 mg, 1x/day
     Route: 048
  10. LANTUS [Concomitant]
     Dosage: 36 IU, 1x/day
  11. BENERVA [Concomitant]
     Dosage: 300 mg, 1x/day
     Route: 048
  12. SERETIDE [Concomitant]
     Dosage: 1 DF, 2x/day
     Route: 055
  13. SPIRIVA [Concomitant]
     Dosage: 1 DF, 1x/day
     Route: 055
  14. VITARUBIN [Concomitant]
     Dosage: 1000 ug, monthly
     Route: 030

REACTIONS (6)
  - Rhabdomyolysis [Recovering/Resolving]
  - Renal failure chronic [Recovered/Resolved]
  - Hypokalaemia [Unknown]
  - Hypophosphataemia [Unknown]
  - Hypocalcaemia [Unknown]
  - Myoglobin blood increased [Unknown]
